FAERS Safety Report 23942367 (Version 1)
Quarter: 2024Q2

REPORT INFORMATION
  Report Type: Spontaneous
  Country: US (occurrence: US)
  Receive Date: 20240605
  Receipt Date: 20240605
  Transmission Date: 20240716
  Serious: Yes (Other)
  Sender: FDA-Public Use
  Company Number: US-REGENERON PHARMACEUTICALS, INC.-2024-052564

PATIENT
  Age: 77 Year
  Sex: Female

DRUGS (1)
  1. EYLEA HD [Suspect]
     Active Substance: AFLIBERCEPT
     Indication: Product used for unknown indication
     Dosage: 8 MG; FORMULATION: EYLEA HD

REACTIONS (3)
  - Vitreal cells [Unknown]
  - Visual acuity reduced transiently [Unknown]
  - Visual impairment [Unknown]
